FAERS Safety Report 12812019 (Version 1)
Quarter: 2016Q4

REPORT INFORMATION
  Report Type: Report from Study
  Country: DE (occurrence: DE)
  Receive Date: 20161005
  Receipt Date: 20161005
  Transmission Date: 20170207
  Serious: Yes (Hospitalization)
  Sender: FDA-Public Use
  Company Number: PHHO2016DE011770

PATIENT
  Age: 65 Year
  Sex: Female
  Weight: 53.1 kg

DRUGS (2)
  1. PEGINTERFERON ALFA-2B [Suspect]
     Active Substance: PEGINTERFERON ALFA-2B
     Indication: CHRONIC MYELOID LEUKAEMIA
     Dosage: 0.5 UG, ONCE
     Route: 065
     Dates: start: 20151218
  2. AMN107 [Suspect]
     Active Substance: NILOTINIB
     Indication: CHRONIC MYELOID LEUKAEMIA
     Dosage: 300 MG, BID
     Route: 048
     Dates: start: 20150915

REACTIONS (7)
  - Pyrexia [Recovered/Resolved]
  - General physical health deterioration [Unknown]
  - Pleural effusion [Recovered/Resolved]
  - C-reactive protein increased [Unknown]
  - Night sweats [Unknown]
  - General physical health deterioration [Recovered/Resolved]
  - Pulmonary embolism [Recovering/Resolving]

NARRATIVE: CASE EVENT DATE: 20160805
